FAERS Safety Report 26195992 (Version 1)
Quarter: 2025Q4

REPORT INFORMATION
  Report Type: Spontaneous
  Country: CN (occurrence: CN)
  Receive Date: 20251224
  Receipt Date: 20251224
  Transmission Date: 20260117
  Serious: Yes (Other)
  Sender: NOVO NORDISK
  Company Number: CN-NOVOPROD-1585623

PATIENT
  Age: 75 Year
  Sex: Female
  Weight: 70 kg

DRUGS (3)
  1. NOVOLIN R [Suspect]
     Active Substance: INSULIN HUMAN
     Indication: Type 2 diabetes mellitus
     Dosage: 14 IU, BID (14 U IN THE MORNING AND 14 U IN THE EVENING)
     Route: 058
  2. METFORMIN [Concomitant]
     Active Substance: METFORMIN HYDROCHLORIDE
     Indication: Type 2 diabetes mellitus
     Dosage: UNK (1 TABLET DAILY)
  3. DAPAGLIFLOZIN [Concomitant]
     Active Substance: DAPAGLIFLOZIN
     Indication: Type 2 diabetes mellitus
     Dosage: UNK (1 TABLET DAILY)

REACTIONS (2)
  - Cataract diabetic [Unknown]
  - Hypoglycaemia [Recovering/Resolving]
